FAERS Safety Report 21069676 (Version 1)
Quarter: 2022Q3

REPORT INFORMATION
  Report Type: Spontaneous
  Country: US (occurrence: US)
  Receive Date: 20220712
  Receipt Date: 20220712
  Transmission Date: 20221027
  Serious: No
  Sender: FDA-Public Use
  Company Number: US-ASTELLAS-2021US034832

PATIENT
  Age: 81 Year
  Sex: Female

DRUGS (2)
  1. MYRBETRIQ [Suspect]
     Active Substance: MIRABEGRON
     Indication: Product used for unknown indication
     Route: 065
     Dates: start: 20210813
  2. PREDNISONE [Concomitant]
     Active Substance: PREDNISONE
     Indication: Pain
     Dosage: UNK UNK, ONCE DAILY (EVERY MORNING)
     Route: 065

REACTIONS (2)
  - Nocturia [Unknown]
  - Micturition urgency [Unknown]

NARRATIVE: CASE EVENT DATE: 20210801
